FAERS Safety Report 5159952-7 (Version None)
Quarter: 2006Q4

REPORT INFORMATION
  Report Type: 
  Country: None (occurrence: None)
  Receive Date: 20061117
  Receipt Date: 20061110
  Transmission Date: 20070319
  Serious: Yes (Hospitalization)
  Sender: FDA-Public Use
  Company Number: 236531K06USA

PATIENT
  Age: 51 Year
  Sex: Female
  Weight: 71.2147 kg

DRUGS (4)
  1. REBIF [Suspect]
     Indication: MULTIPLE SCLEROSIS
     Dosage: 44 MCG, 3 IN 1 WEEKS, SUBCUTANEOUS
     Route: 058
     Dates: start: 20060909
  2. IRON [Concomitant]
  3. ASPIRIN [Concomitant]
  4. BACLOFEN [Concomitant]

REACTIONS (4)
  - ACTIVITIES OF DAILY LIVING IMPAIRED [None]
  - DEHYDRATION [None]
  - IMMOBILE [None]
  - URINARY INCONTINENCE [None]
